FAERS Safety Report 9270143 (Version 2)
Quarter: 2013Q2

REPORT INFORMATION
  Report Type: Spontaneous
  Country: US (occurrence: US)
  Receive Date: 20130503
  Receipt Date: 20130628
  Transmission Date: 20140414
  Serious: Yes (Hospitalization)
  Sender: FDA-Public Use
  Company Number: US-UCBSA-084166

PATIENT
  Age: 58 Year
  Sex: Male

DRUGS (4)
  1. KEPPRA XR [Suspect]
     Indication: CONVULSION
     Dosage: STRENGTH: 750 MG
  2. KEPPRA [Suspect]
     Indication: CONVULSION
     Dates: start: 20130414
  3. CLONAZEPAM [Concomitant]
  4. LAMICTAL [Concomitant]

REACTIONS (3)
  - Convulsion [Not Recovered/Not Resolved]
  - Loss of consciousness [Recovered/Resolved]
  - Overdose [Unknown]
